FAERS Safety Report 7414816-0 (Version None)
Quarter: 2011Q2

REPORT INFORMATION
  Report Type: 
  Country: None (occurrence: None)
  Receive Date: 20110405
  Receipt Date: 20110321
  Transmission Date: 20111010
  Serious: Yes (Other)
  Sender: FDA-Public Use
  Company Number: 2011BN000027

PATIENT

DRUGS (2)
  1. MELPHALAN [Suspect]
     Indication: MALIGNANT MELANOMA
  2. ADH-1 [Suspect]
     Indication: MALIGNANT MELANOMA
     Dosage: 4000 MG;	 IV
     Route: 042

REACTIONS (4)
  - PNEUMONITIS [None]
  - BLOOD CREATINE PHOSPHOKINASE INCREASED [None]
  - NEUTROPENIA [None]
  - ARTERIAL INJURY [None]
